FAERS Safety Report 14014584 (Version 3)
Quarter: 2017Q4

REPORT INFORMATION
  Report Type: Spontaneous
  Country: JP (occurrence: JP)
  Receive Date: 20170927
  Receipt Date: 20171016
  Transmission Date: 20180321
  Serious: No
  Sender: FDA-Public Use
  Company Number: JP-UCBSA-2017037689

PATIENT
  Age: 9 Decade
  Sex: Female

DRUGS (8)
  1. E KEPPRA [Suspect]
     Active Substance: LEVETIRACETAM
     Indication: OFF LABEL USE
     Dosage: 1650 MG, DAILY
     Route: 048
     Dates: start: 2017, end: 2017
  2. E KEPPRA [Suspect]
     Active Substance: LEVETIRACETAM
     Dosage: 1900 MG, DAILY
     Route: 048
     Dates: start: 20170822, end: 2017
  3. E KEPPRA [Suspect]
     Active Substance: LEVETIRACETAM
     Indication: MYOCLONIC EPILEPSY
     Dosage: 1400 MG, DAILY
     Route: 048
  4. SODIUM VALPROATE [Concomitant]
     Active Substance: VALPROATE SODIUM
     Indication: MYOCLONIC EPILEPSY
     Dosage: 1000 MG DAILY
     Route: 048
  5. E KEPPRA [Suspect]
     Active Substance: LEVETIRACETAM
     Dosage: 2200 MG, DAILY
     Route: 048
     Dates: start: 20170913
  6. CLONAZEPAM. [Concomitant]
     Active Substance: CLONAZEPAM
     Indication: MYOCLONIC EPILEPSY
     Dosage: UNK
  7. SODIUM VALPROATE [Concomitant]
     Active Substance: VALPROATE SODIUM
     Dosage: 500 MG DAILY
     Route: 048
  8. E KEPPRA [Suspect]
     Active Substance: LEVETIRACETAM
     Dosage: 2200 MG, DAILY
     Route: 048
     Dates: start: 20170911, end: 201709

REACTIONS (2)
  - Off label use [Unknown]
  - Dyskinesia [Unknown]
